FAERS Safety Report 9404049 (Version 1)
Quarter: 2013Q3

REPORT INFORMATION
  Report Type: Spontaneous
  Country: FR (occurrence: None)
  Receive Date: 20130712
  Receipt Date: 20130712
  Transmission Date: 20140515
  Serious: Yes (Other)
  Sender: FDA-Public Use
  Company Number: SYM-2013-05988

PATIENT
  Age: 63 Year
  Sex: Female

DRUGS (1)
  1. FLAGYL [Suspect]
     Indication: TOOTH ABSCESS
     Route: 048
     Dates: start: 201301, end: 201301

REACTIONS (2)
  - Face oedema [None]
  - Laryngeal discomfort [None]
